FAERS Safety Report 12451244 (Version 1)
Quarter: 2016Q2

REPORT INFORMATION
  Report Type: Spontaneous
  Country: US (occurrence: None)
  Receive Date: 20160608
  Receipt Date: 20160608
  Transmission Date: 20160815
  Serious: No
  Sender: FDA-Public Use
  Company Number: None

PATIENT
  Age: 53 Year
  Sex: Female
  Weight: 69.85 kg

DRUGS (4)
  1. ACETAMINOPHEN\HYDROCODONE BITARTRATE [Concomitant]
     Active Substance: ACETAMINOPHEN\HYDROCODONE BITARTRATE
     Route: 048
  2. HYDROCODON ACETAMINOPHEN 1-325 MG [Suspect]
     Active Substance: ACETAMINOPHEN\HYDROCODONE
  3. NUCYNTA [Suspect]
     Active Substance: TAPENTADOL HYDROCHLORIDE
     Indication: PRODUCT USED FOR UNKNOWN INDICATION
     Dosage: 50 MG, 10-325 MG, 400 MG, 3 TIMES A DAY, 1.3 TIMES A DAY, 1 TABLET A DAY, 3,3,1 MOUTH
     Route: 048
  4. ETODOLAC 400 MG TABS [Suspect]
     Active Substance: ETODOLAC
     Route: 048

REACTIONS (7)
  - Back pain [None]
  - Pain in extremity [None]
  - Arthralgia [None]
  - Pain [None]
  - Chest pain [None]
  - Unevaluable event [None]
  - Swelling face [None]

NARRATIVE: CASE EVENT DATE: 20160402
